FAERS Safety Report 5814518-8 (Version None)
Quarter: 2008Q3

REPORT INFORMATION
  Report Type: 
  Country: None (occurrence: None)
  Receive Date: 20080715
  Receipt Date: 20080630
  Transmission Date: 20090109
  Serious: Yes (Other)
  Sender: FDA-Public Use
  Company Number: 2008S1011475

PATIENT
  Age: 80 Year
  Sex: Male

DRUGS (6)
  1. MELOXICAM [Suspect]
     Indication: BONE PAIN
     Dosage: 15 MG; ORAL, 15 MG; ORAL
     Route: 048
     Dates: start: 20080116, end: 20080208
  2. MELOXICAM [Suspect]
     Indication: OSTEOARTHRITIS
     Dosage: 15 MG; ORAL, 15 MG; ORAL
     Route: 048
     Dates: start: 20080116, end: 20080208
  3. DICLOFENAC SODIUM [Suspect]
     Indication: BONE PAIN
     Dosage: 75 MG; TWICE A DAY ORAL, 75 MG; ORAL; TWICE A DAY
     Route: 048
     Dates: start: 20071119, end: 20080114
  4. DICLOFENAC SODIUM [Suspect]
     Indication: OSTEOARTHRITIS
     Dosage: 75 MG; TWICE A DAY ORAL, 75 MG; ORAL; TWICE A DAY
     Route: 048
     Dates: start: 20071119, end: 20080114
  5. BENDROFLUMETHIAZIDE (BENDROFLUMETHIAZIDE) [Concomitant]
  6. DOXAZOSIN (DOXAZOSIN) [Concomitant]

REACTIONS (2)
  - DIVERTICULUM [None]
  - RECTAL HAEMORRHAGE [None]
